FAERS Safety Report 6370504-3 (Version None)
Quarter: 2009Q3

REPORT INFORMATION
  Report Type: 
  Country: None (occurrence: None)
  Receive Date: 20090918
  Receipt Date: 20090903
  Transmission Date: 20100115
  Serious: Yes (Other)
  Sender: FDA-Public Use
  Company Number: 001675

PATIENT

DRUGS (2)
  1. LACOSAMIDE [Suspect]
     Indication: CONVULSION
     Dosage: 50 MG BID ORAL, 100 MG BID ORAL
     Route: 048
     Dates: start: 20090801, end: 20090801
  2. LACOSAMIDE [Suspect]
     Indication: CONVULSION
     Dosage: 50 MG BID ORAL, 100 MG BID ORAL
     Route: 048
     Dates: start: 20090801

REACTIONS (1)
  - LIPASE INCREASED [None]
